FAERS Safety Report 18144669 (Version 1)
Quarter: 2020Q3

REPORT INFORMATION
  Report Type: Spontaneous
  Country: US (occurrence: US)
  Receive Date: 20200812
  Receipt Date: 20200812
  Transmission Date: 20201103
  Serious: No
  Sender: FDA-Public Use
  Company Number: None

PATIENT
  Age: 61 Year
  Sex: Female

DRUGS (2)
  1. BENLYSTA [Suspect]
     Active Substance: BELIMUMAB
     Indication: SYSTEMIC LUPUS ERYTHEMATOSUS
     Dosage: AS DIRECTED
     Route: 058
     Dates: start: 202005
  2. BENLYSTA [Suspect]
     Active Substance: BELIMUMAB
     Indication: POLYARTHRITIS
     Dosage: AS DIRECTED
     Route: 058
     Dates: start: 202005

REACTIONS (2)
  - Infection [None]
  - Therapy interrupted [None]
